FAERS Safety Report 6443407-3 (Version None)
Quarter: 2009Q4

REPORT INFORMATION
  Report Type: 
  Country: None (occurrence: None)
  Receive Date: 20091117
  Receipt Date: 20091106
  Transmission Date: 20100525
  Serious: Yes (Other)
  Sender: FDA-Public Use
  Company Number: ZA-PFIZER INC-2009294102

PATIENT
  Age: 4 Year
  Sex: Male

DRUGS (2)
  1. DIFLUCAN [Suspect]
     Indication: SYSTEMIC CANDIDA
     Dosage: 100 MG, 1X/DAY
     Route: 065
  2. MULTI-VITAMINS [Concomitant]
     Dosage: UNK

REACTIONS (3)
  - CONVULSION [None]
  - DISORIENTATION [None]
  - SOMNOLENCE [None]
